FAERS Safety Report 6027987-8 (Version None)
Quarter: 2008Q4

REPORT INFORMATION
  Report Type: 
  Country: None (occurrence: None)
  Receive Date: 20081230
  Receipt Date: 20081219
  Transmission Date: 20090506
  Serious: Yes (Hospitalization)
  Sender: FDA-Public Use
  Company Number: 2008SP025136

PATIENT
  Age: 62 Year
  Sex: Female
  Weight: 53 kg

DRUGS (8)
  1. CLARITIN [Suspect]
     Indication: DERMATITIS CONTACT
     Dosage: 10 MG; ; PO
     Route: 048
     Dates: start: 20070101
  2. CLARITIN [Suspect]
     Indication: PRURIGO
     Dosage: 10 MG; ; PO
     Route: 048
     Dates: start: 20070101
  3. CLARITIN [Suspect]
     Indication: DERMATITIS CONTACT
     Dosage: 10 MG; ; PO
     Route: 048
     Dates: start: 20081007
  4. CLARITIN [Suspect]
     Indication: PRURIGO
     Dosage: 10 MG; ; PO
     Route: 048
     Dates: start: 20081007
  5. ALESION [Concomitant]
  6. RINDERON [Concomitant]
  7. COENZYME Q10 [Concomitant]
  8. ANTEBATE [Concomitant]

REACTIONS (2)
  - DRUG ERUPTION [None]
  - PRURITUS [None]
